FAERS Safety Report 14557432 (Version 3)
Quarter: 2018Q3

REPORT INFORMATION
  Report Type: Spontaneous
  Country: US (occurrence: US)
  Receive Date: 20180221
  Receipt Date: 20180717
  Transmission Date: 20181010
  Serious: No
  Sender: FDA-Public Use
  Company Number: US-PFIZER INC-2018050674

PATIENT
  Age: 15 Year
  Sex: Male

DRUGS (2)
  1. GENOTROPIN [Suspect]
     Active Substance: SOMATROPIN
     Dosage: 1.8 MG, DAILY
  2. GENOTROPIN [Suspect]
     Active Substance: SOMATROPIN
     Dosage: 2 MG, DAILY
     Dates: start: 201705

REACTIONS (7)
  - Drug dose omission [Unknown]
  - Red cell distribution width increased [Unknown]
  - Influenza [Unknown]
  - Attention deficit/hyperactivity disorder [Unknown]
  - Arthralgia [Unknown]
  - Blood bilirubin increased [Unknown]
  - Blood creatinine decreased [Unknown]
